FAERS Safety Report 5887281-2 (Version None)
Quarter: 2008Q3

REPORT INFORMATION
  Report Type: 
  Country: None (occurrence: None)
  Receive Date: 20080915
  Receipt Date: 20080905
  Transmission Date: 20090109
  Serious: Yes (Hospitalization)
  Sender: FDA-Public Use
  Company Number: 20085321

PATIENT
  Sex: Male

DRUGS (3)
  1. LIORESAL [Suspect]
     Indication: MUSCLE SPASTICITY
     Dosage: MCG, DAILY, INTRATHECAL
     Route: 037
  2. PRIALT [Concomitant]
  3. CYMBALTA [Concomitant]

REACTIONS (10)
  - COMA [None]
  - CONDITION AGGRAVATED [None]
  - DEPRESSION [None]
  - HALLUCINATION [None]
  - INTENTIONAL SELF-INJURY [None]
  - LOSS OF CONSCIOUSNESS [None]
  - MOOD ALTERED [None]
  - OPEN WOUND [None]
  - PYREXIA [None]
  - SCRATCH [None]
